FAERS Safety Report 7555006-0 (Version None)
Quarter: 2011Q2

REPORT INFORMATION
  Report Type: 
  Country: None (occurrence: None)
  Receive Date: 20110617
  Receipt Date: 20110606
  Transmission Date: 20111010
  Serious: Yes (Other)
  Sender: FDA-Public Use
  Company Number: CA-JNJFOC-20110208474

PATIENT
  Sex: Female
  Weight: 92 kg

DRUGS (6)
  1. LYRICA [Concomitant]
     Route: 048
  2. FOLIC ACID [Concomitant]
     Dosage: EXCEPT ON DAYS OF METHOTREXATE
     Route: 065
  3. ACTIVON [Concomitant]
     Dosage: AS REQUIRED OR WHEN NEEDED
     Route: 065
  4. REMICADE [Suspect]
     Indication: RHEUMATOID ARTHRITIS
     Dosage: 100MG/VIAL, 10MG = 1ML
     Route: 042
     Dates: start: 20100311
  5. METHOTREXATE [Concomitant]
     Route: 065
  6. HYDROXYQUINOLINE [Concomitant]
     Route: 048

REACTIONS (2)
  - FIBROMYALGIA [None]
  - PAIN [None]
